FAERS Safety Report 9521755 (Version 1)
Quarter: 2013Q3

REPORT INFORMATION
  Report Type: Spontaneous
  Country: US (occurrence: None)
  Receive Date: 20130911
  Receipt Date: 20130911
  Transmission Date: 20140515
  Serious: No
  Sender: FDA-Public Use
  Company Number: AEUSA201300161

PATIENT
  Age: 83 Year
  Sex: Female

DRUGS (4)
  1. GAMMAKED [Suspect]
     Indication: CHRONIC INFLAMMATORY DEMYELINATING POLYRADICULONEUROPATHY
     Route: 042
     Dates: start: 20130423, end: 20130423
  2. GABAPENTIN [Concomitant]
  3. LYRICA [Concomitant]
  4. XANAX [Concomitant]

REACTIONS (8)
  - Hyperhidrosis [None]
  - Chills [None]
  - Tremor [None]
  - Back pain [None]
  - Dyspnoea [None]
  - Myalgia [None]
  - Musculoskeletal stiffness [None]
  - Myalgia [None]
